FAERS Safety Report 9231684 (Version 2)
Quarter: 2013Q3

REPORT INFORMATION
  Report Type: Spontaneous
  Country: US (occurrence: US)
  Receive Date: 20130415
  Receipt Date: 20130709
  Transmission Date: 20140515
  Serious: Yes (Other)
  Sender: FDA-Public Use
  Company Number: US-PFIZER INC-2013112105

PATIENT
  Age: 24 Year
  Sex: Male
  Weight: 120 kg

DRUGS (1)
  1. BENEFIX [Suspect]
     Dosage: 50 IU/KG, AS NEEDED

REACTIONS (2)
  - Haemorrhage [Unknown]
  - Disease complication [Unknown]
